FAERS Safety Report 25681429 (Version 1)
Quarter: 2025Q3

REPORT INFORMATION
  Report Type: Spontaneous
  Country: EU (occurrence: EU)
  Receive Date: 20250814
  Receipt Date: 20250814
  Transmission Date: 20251020
  Serious: Yes (Other)
  Sender: SANOFI AVENTIS
  Company Number: None

PATIENT
  Age: 83 Year
  Sex: Male
  Weight: 78.2 kg

DRUGS (20)
  1. RIFAMPIN [Suspect]
     Active Substance: RIFAMPIN
     Indication: Prosthetic valve endocarditis
     Dosage: 1 DF, BID
     Dates: start: 20250705
  2. ASPIRIN [Concomitant]
     Active Substance: ASPIRIN
     Route: 048
  3. AMLODIPINE [Concomitant]
     Active Substance: AMLODIPINE BESYLATE
     Route: 048
  4. BECLOMETASONE;FORMOTEROL;GLYCOPYRRONIUM [Concomitant]
     Route: 055
  5. BETAMETHASONE [Concomitant]
     Active Substance: BETAMETHASONE
     Route: 003
  6. CEFAZOLIN [Concomitant]
     Active Substance: CEFAZOLIN
  7. CEFAZOLIN [Concomitant]
     Active Substance: CEFAZOLIN
  8. CHOLECALCIFEROL [Concomitant]
     Active Substance: CHOLECALCIFEROL
     Route: 048
  9. FOLIC ACID [Concomitant]
     Active Substance: FOLIC ACID
     Route: 048
  10. FUROSEMIDE [Concomitant]
     Active Substance: FUROSEMIDE
  11. NITROGLYCERIN [Concomitant]
     Active Substance: NITROGLYCERIN
     Route: 062
  12. PANTOPRAZOLE [Concomitant]
     Active Substance: PANTOPRAZOLE
     Route: 048
  13. ACETAMINOPHEN [Concomitant]
     Active Substance: ACETAMINOPHEN
     Route: 048
  14. PERINDOPRIL ERBUMINE [Concomitant]
     Active Substance: PERINDOPRIL ERBUMINE
     Route: 048
  15. ROSUVASTATIN [Concomitant]
     Active Substance: ROSUVASTATIN
     Route: 048
  16. SPIRONOLACTONE [Concomitant]
     Active Substance: SPIRONOLACTONE
     Route: 048
  17. TAMSULOSIN [Concomitant]
     Active Substance: TAMSULOSIN
     Route: 048
  18. NITROGLYCERIN [Concomitant]
     Active Substance: NITROGLYCERIN
     Route: 060
  19. ALBUTEROL SULFATE\IPRATROPIUM BROMIDE [Concomitant]
     Active Substance: ALBUTEROL SULFATE\IPRATROPIUM BROMIDE
     Route: 055
  20. TEMAZEPAM [Concomitant]
     Active Substance: TEMAZEPAM
     Route: 048

REACTIONS (1)
  - Cutaneous vasculitis [Not Recovered/Not Resolved]

NARRATIVE: CASE EVENT DATE: 20250722
